FAERS Safety Report 7846791-9 (Version None)
Quarter: 2011Q4

REPORT INFORMATION
  Report Type: 
  Country: None (occurrence: None)
  Receive Date: 20111025
  Receipt Date: 20111020
  Transmission Date: 20120403
  Serious: Yes (Death, Other)
  Sender: FDA-Public Use
  Company Number: PHHY2011JP93216

PATIENT

DRUGS (1)
  1. NEORAL [Suspect]
     Indication: CORD BLOOD TRANSPLANT THERAPY

REACTIONS (2)
  - DEATH [None]
  - SEPSIS [None]
